FAERS Safety Report 9169171 (Version 1)
Quarter: 2013Q1

REPORT INFORMATION
  Report Type: Spontaneous
  Country: FR (occurrence: FR)
  Receive Date: 20130318
  Receipt Date: 20130318
  Transmission Date: 20140127
  Serious: Yes (Hospitalization, Other)
  Sender: FDA-Public Use
  Company Number: FR-BRISTOL-MYERS SQUIBB COMPANY-17457086

PATIENT
  Age: 75 Year
  Sex: Male

DRUGS (5)
  1. COUMADIN [Suspect]
     Indication: ATRIAL FIBRILLATION
     Dosage: INTERRUPTED ON 31-JAN-2013
     Route: 048
     Dates: start: 2004
  2. CLAMOXYL [Interacting]
     Indication: BRONCHITIS
     Route: 048
     Dates: start: 20130124, end: 20130131
  3. SOTALEX [Concomitant]
     Indication: CARDIOMYOPATHY
     Route: 048
     Dates: end: 201302
  4. TRIATEC [Concomitant]
     Route: 048
  5. ZYLORIC [Concomitant]
     Route: 048

REACTIONS (6)
  - Muscle haemorrhage [Recovered/Resolved]
  - Intra-abdominal haematoma [Recovering/Resolving]
  - Anaemia [Recovering/Resolving]
  - Bronchitis [Unknown]
  - Circulatory collapse [Unknown]
  - Drug interaction [Unknown]
